FAERS Safety Report 4713956-4 (Version None)
Quarter: 2005Q3

REPORT INFORMATION
  Report Type: 
  Country: None (occurrence: None)
  Receive Date: 20050712
  Receipt Date: 20050628
  Transmission Date: 20060218
  Serious: Yes (Death, Life-Threatening, Hospitalization)
  Sender: FDA-Public Use
  Company Number: EWC050644726

PATIENT
  Age: 69 Year
  Sex: Female

DRUGS (9)
  1. ZYPREXA [Suspect]
     Indication: ANXIETY
     Dosage: 5 MG/2 DAY
     Dates: start: 20041221, end: 20050118
  2. ZYPREXA [Suspect]
     Indication: PSYCHOTIC DISORDER
     Dosage: 5 MG/2 DAY
     Dates: start: 20041221, end: 20050118
  3. ACETAMINOPHEN [Concomitant]
  4. FRAXIPARINE (NADROPARIN CALCIUM) [Concomitant]
  5. INSULATARD NPH HUMAN [Concomitant]
  6. LASIX [Concomitant]
  7. TRANXENE [Concomitant]
  8. TRAZOLAN (TRAZODONE HYDROCHLORIDE) [Concomitant]
  9. URFADYN (NIFURTOINOL) [Concomitant]

REACTIONS (3)
  - BLOOD POTASSIUM DECREASED [None]
  - CARDIAC ARREST [None]
  - SUDDEN DEATH [None]
